FAERS Safety Report 9485442 (Version 4)
Quarter: 2014Q2

REPORT INFORMATION
  Report Type: Spontaneous
  Country: BR (occurrence: BR)
  Receive Date: 20130829
  Receipt Date: 20140613
  Transmission Date: 20141212
  Serious: Yes (Death, Hospitalization)
  Sender: FDA-Public Use
  Company Number: BR-BIOGENIDEC-2012BI030159

PATIENT
  Sex: Male

DRUGS (1)
  1. AVONEX [Suspect]
     Indication: MULTIPLE SCLEROSIS
     Route: 030
     Dates: start: 20120105, end: 20121130

REACTIONS (5)
  - Death [Fatal]
  - Urinary tract infection [Recovered/Resolved]
  - Upper respiratory fungal infection [Not Recovered/Not Resolved]
  - Sepsis [Unknown]
  - Coma [Recovered/Resolved]
